FAERS Safety Report 7981706-4 (Version None)
Quarter: 2011Q4

REPORT INFORMATION
  Report Type: 
  Country: None (occurrence: None)
  Receive Date: 20111213
  Receipt Date: 20111129
  Transmission Date: 20120403
  Serious: Yes (Death, Hospitalization)
  Sender: FDA-Public Use
  Company Number: 2011AL000093

PATIENT
  Age: 64 Year
  Sex: Female
  Weight: 56 kg

DRUGS (5)
  1. FOLOTYN [Suspect]
     Indication: T-CELL LYMPHOMA
     Dosage: 49 MG, IV
     Route: 042
     Dates: start: 20111028, end: 20111104
  2. FOLIC ACID [Concomitant]
  3. MORPHINE [Concomitant]
  4. ALLOPURINOL [Concomitant]
  5. OMEPRAZOLE [Concomitant]

REACTIONS (2)
  - PNEUMONIA [None]
  - RESPIRATORY FAILURE [None]
